FAERS Safety Report 16866886 (Version 1)
Quarter: 2019Q3

REPORT INFORMATION
  Report Type: Spontaneous
  Country: DE (occurrence: DE)
  Receive Date: 20190930
  Receipt Date: 20190930
  Transmission Date: 20191005
  Serious: Yes (Hospitalization)
  Sender: FDA-Public Use
  Company Number: DE-ACCORD-144178

PATIENT
  Age: 86 Year
  Sex: Male

DRUGS (12)
  1. BISOPROLOL [Concomitant]
     Active Substance: BISOPROLOL
  2. RISPERIDONE. [Concomitant]
     Active Substance: RISPERIDONE
  3. AMLODIPINE [Concomitant]
     Active Substance: AMLODIPINE BESYLATE
  4. FOLIC ACID. [Concomitant]
     Active Substance: FOLIC ACID
  5. TORASEMIDE [Concomitant]
     Active Substance: TORSEMIDE
  6. FERRO SANOL [Concomitant]
     Active Substance: FERROUS GLYCINE SULFATE
  7. MIRTAZAPINE. [Concomitant]
     Active Substance: MIRTAZAPINE
     Indication: DEPRESSION
     Dosage: FOR ABOUT 6 MONTHS
  8. DONEPEZIL/DONEPEZIL HYDROCHLORIDE [Concomitant]
     Dosage: FOR ABOUT 18 MONTHS
  9. LORAZEPAM. [Concomitant]
     Active Substance: LORAZEPAM
  10. LEVOTHYROXINE. [Concomitant]
     Active Substance: LEVOTHYROXINE
  11. ARIPIPRAZOLE. [Suspect]
     Active Substance: ARIPIPRAZOLE
     Indication: PSYCHOTIC SYMPTOM
     Dosage: ASCENDING DOSES OF 5 MG / D ON THE 10TH DAY, 10 MG / D ON THE 15TH DAY
  12. QUETIAPINE/QUETIAPINE FUMARATE [Concomitant]
     Indication: SOMNOLENCE

REACTIONS (1)
  - Hypersexuality [Recovered/Resolved]
